FAERS Safety Report 7834051-1 (Version None)
Quarter: 2011Q4

REPORT INFORMATION
  Report Type: 
  Country: None (occurrence: None)
  Receive Date: 20111024
  Receipt Date: 20111024
  Transmission Date: 20120403
  Serious: Yes (Hospitalization)
  Sender: FDA-Public Use
  Company Number: None

PATIENT
  Age: 60 Year
  Sex: Female
  Weight: 71.67 kg

DRUGS (4)
  1. DOXORUBICIN HCL [Concomitant]
     Route: 042
  2. CYCLOPHOSPHAMIDE [Concomitant]
     Route: 042
  3. VORINOSTAT [Suspect]
     Indication: BREAST CANCER
     Dosage: 300 MG
     Route: 048
     Dates: start: 20110706, end: 20110922
  4. PEGFILGRASTIM [Concomitant]
     Route: 058

REACTIONS (3)
  - DIARRHOEA [None]
  - VOMITING [None]
  - FEBRILE NEUTROPENIA [None]
